FAERS Safety Report 7046745-9 (Version None)
Quarter: 2010Q4

REPORT INFORMATION
  Report Type: 
  Country: None (occurrence: None)
  Receive Date: 20101015
  Receipt Date: 20101007
  Transmission Date: 20110411
  Serious: Yes (Hospitalization)
  Sender: FDA-Public Use
  Company Number: GB-JNJFOC-20101003000

PATIENT
  Sex: Female

DRUGS (1)
  1. DURAGESIC-100 [Suspect]
     Indication: ARTHRITIS
     Dosage: LENGTH OF TREATMENT = APPROXIMATELY 1 YEAR
     Route: 062

REACTIONS (2)
  - APPLICATION SITE ERYTHEMA [None]
  - HIP ARTHROPLASTY [None]
